FAERS Safety Report 6340716-3 (Version None)
Quarter: 2009Q3

REPORT INFORMATION
  Report Type: 
  Country: None (occurrence: None)
  Receive Date: 20090904
  Receipt Date: 20090827
  Transmission Date: 20100115
  Serious: Yes (Other)
  Sender: FDA-Public Use
  Company Number: ES-ROCHE-653238

PATIENT
  Age: 49 Year
  Sex: Female

DRUGS (3)
  1. TAMIFLU [Suspect]
     Indication: INFLUENZA
     Route: 048
     Dates: start: 20090822, end: 20090826
  2. SERETIDE [Concomitant]
     Indication: ASTHMA
  3. SALBUTAMOL [Concomitant]
     Indication: ASTHMA

REACTIONS (4)
  - BRONCHOSPASM [None]
  - HYPERSENSITIVITY [None]
  - INSOMNIA [None]
  - SPUTUM ABNORMAL [None]
